FAERS Safety Report 9797037 (Version 3)
Quarter: 2018Q4

REPORT INFORMATION
  Report Type: Report from Study
  Country: US (occurrence: US)
  Receive Date: 20140105
  Receipt Date: 20181008
  Transmission Date: 20190205
  Serious: Yes (Other)
  Sender: FDA-Public Use
  Company Number: US-ROCHE-1327776

PATIENT
  Age: 4 Year
  Sex: Male
  Weight: 35.1 kg

DRUGS (10)
  1. LEVOTHYROXINE. [Concomitant]
     Active Substance: LEVOTHYROXINE
     Dosage: 1/2 OF 125 MCG TAB WITH DINNER
     Route: 065
  2. NUTROPIN AQ [Suspect]
     Active Substance: SOMATROPIN
     Dosage: AT NIGHT 6 TIMES PER WEEK
     Route: 058
  3. RANITIDINE. [Concomitant]
     Active Substance: RANITIDINE
     Route: 048
  4. SYNTHROID [Concomitant]
     Active Substance: LEVOTHYROXINE SODIUM
     Route: 048
  5. CORTEF [Concomitant]
     Active Substance: HYDROCORTISONE
     Route: 048
  6. SOLU-CORTEF [Concomitant]
     Active Substance: HYDROCORTISONE SODIUM SUCCINATE
     Dosage: PRN
     Route: 030
     Dates: start: 20130912, end: 20131014
  7. SYNTHROID [Concomitant]
     Active Substance: LEVOTHYROXINE SODIUM
     Route: 048
  8. LEVOTHYROXINE. [Concomitant]
     Active Substance: LEVOTHYROXINE
     Route: 048
  9. NUTROPIN AQ [Suspect]
     Active Substance: SOMATROPIN
     Indication: HYPOPITUITARISM
     Dosage: AT NIGHT 6 TIMES PER WEEK
     Route: 058
     Dates: start: 2011
  10. LANSOPRAZOLE. [Concomitant]
     Active Substance: LANSOPRAZOLE
     Route: 048

REACTIONS (7)
  - Cortisol decreased [Unknown]
  - Sleep disorder [Unknown]
  - Weight increased [Unknown]
  - Enuresis [Unknown]
  - Gastrooesophageal reflux disease [Unknown]
  - Adrenal insufficiency [Unknown]
  - Vomiting [Unknown]

NARRATIVE: CASE EVENT DATE: 201307
